FAERS Safety Report 5302295-9 (Version None)
Quarter: 2007Q2

REPORT INFORMATION
  Report Type: 
  Country: None (occurrence: None)
  Receive Date: 20070419
  Receipt Date: 20070412
  Transmission Date: 20071010
  Serious: Yes (Hospitalization, Other)
  Sender: FDA-Public Use
  Company Number: GB-ABBOTT-07P-167-0364936-00

PATIENT
  Age: 43 Year
  Sex: Male
  Weight: 83 kg

DRUGS (6)
  1. HUMIRA [Suspect]
     Indication: ANKYLOSING SPONDYLITIS
     Dates: start: 20061018
  2. NAPRATEC OP [Concomitant]
     Indication: ANKYLOSING SPONDYLITIS
     Dates: start: 20051117
  3. ALENDRONIC ACID [Concomitant]
     Indication: ANKYLOSING SPONDYLITIS
     Dates: start: 20021216
  4. TRAMADOL MR [Concomitant]
     Indication: ANKYLOSING SPONDYLITIS
     Dates: start: 20030123
  5. CALCIUM [Concomitant]
     Indication: ANKYLOSING SPONDYLITIS
     Dates: start: 20040913
  6. ERGOCALCIFEROL [Concomitant]
     Indication: ANKYLOSING SPONDYLITIS
     Dates: start: 20040913

REACTIONS (2)
  - ACUTE GENERALISED EXANTHEMATOUS PUSTULOSIS [None]
  - MALAISE [None]
